FAERS Safety Report 16366873 (Version 1)
Quarter: 2019Q2

REPORT INFORMATION
  Report Type: Report from Study
  Country: None (occurrence: US)
  Receive Date: 20190529
  Receipt Date: 20190529
  Transmission Date: 20190711
  Serious: Yes (Other)
  Sender: FDA-Public Use
  Company Number: US-ABBVIE-19K-163-2796871-00

PATIENT
  Age: 53 Year
  Sex: Female

DRUGS (1)
  1. HUMIRA [Suspect]
     Active Substance: ADALIMUMAB
     Indication: RHEUMATOID ARTHRITIS
     Dosage: CITRATE FREE (CF)
     Route: 058

REACTIONS (5)
  - Insomnia [Unknown]
  - Neck pain [Unknown]
  - Headache [Unknown]
  - Mobility decreased [Unknown]
  - Blindness transient [Unknown]

NARRATIVE: CASE EVENT DATE: 2019
